FAERS Safety Report 5828570-7 (Version None)
Quarter: 2008Q3

REPORT INFORMATION
  Report Type: 
  Country: None (occurrence: None)
  Receive Date: 20080731
  Receipt Date: 20080721
  Transmission Date: 20090109
  Serious: Yes (Disabling)
  Sender: FDA-Public Use
  Company Number: CN-ASTRAZENECA-2008AP05663

PATIENT
  Age: 62 Year
  Sex: Male

DRUGS (3)
  1. IRESSA [Suspect]
     Indication: LUNG ADENOCARCINOMA
     Route: 048
     Dates: start: 20071101
  2. VINORELBINE [Concomitant]
     Dates: end: 20071101
  3. CISPLATIN [Concomitant]
     Dates: end: 20071101

REACTIONS (1)
  - DEAFNESS [None]
